FAERS Safety Report 9240007 (Version 1)
Quarter: 2013Q2

REPORT INFORMATION
  Report Type: Spontaneous
  Country: DK (occurrence: DK)
  Receive Date: 20130418
  Receipt Date: 20130418
  Transmission Date: 20140414
  Serious: Yes (Other)
  Sender: FDA-Public Use
  Company Number: DK-GLAXOSMITHKLINE-B0884522A

PATIENT
  Age: 54 Year
  Sex: Female

DRUGS (4)
  1. ZYBAN [Suspect]
     Indication: EX-TOBACCO USER
     Route: 065
     Dates: start: 201302, end: 20130407
  2. SAROTEN [Concomitant]
     Indication: MUSCULOSKELETAL PAIN
  3. METFORMIN [Concomitant]
     Dosage: 500MG PER DAY
  4. PINEX [Concomitant]
     Dosage: 1G THREE TIMES PER DAY

REACTIONS (10)
  - Suicidal ideation [Recovering/Resolving]
  - Anxiety [Recovering/Resolving]
  - Hyperhidrosis [Not Recovered/Not Resolved]
  - Depressed mood [Recovering/Resolving]
  - Palpitations [Recovering/Resolving]
  - Decreased appetite [Not Recovered/Not Resolved]
  - Tremor [Recovering/Resolving]
  - Restlessness [Not Recovered/Not Resolved]
  - Temperature intolerance [Not Recovered/Not Resolved]
  - Thinking abnormal [Recovering/Resolving]
